FAERS Safety Report 18782716 (Version 1)
Quarter: 2021Q1

REPORT INFORMATION
  Report Type: Spontaneous
  Country: CN (occurrence: CN)
  Receive Date: 20210125
  Receipt Date: 20210125
  Transmission Date: 20210419
  Serious: Yes (Other)
  Sender: FDA-Public Use
  Company Number: CN-SUN PHARMACEUTICAL INDUSTRIES LTD-2021R1-277419

PATIENT
  Age: 50 Year
  Sex: Male

DRUGS (3)
  1. SINTILIMAB. [Suspect]
     Active Substance: SINTILIMAB
     Indication: NASOPHARYNGEAL CANCER
     Dosage: 200 MILLIGRAM , UNK
     Route: 065
  2. GEMCITABINE. [Suspect]
     Active Substance: GEMCITABINE
     Indication: NASOPHARYNGEAL CANCER
     Dosage: 1000 MILLIGRAM/SQ. METER , UNK
     Route: 065
  3. CISPLATIN. [Suspect]
     Active Substance: CISPLATIN
     Indication: NASOPHARYNGEAL CANCER
     Dosage: 75 MILLIGRAM/SQ. METER , UNK
     Route: 065

REACTIONS (1)
  - COVID-19 [Unknown]
